FAERS Safety Report 16014060 (Version 1)
Quarter: 2019Q1

REPORT INFORMATION
  Report Type: Spontaneous
  Country: US (occurrence: US)
  Receive Date: 20190227
  Receipt Date: 20190227
  Transmission Date: 20190418
  Serious: No
  Sender: FDA-Public Use
  Company Number: US-CELGENEUS-USA-20190207876

PATIENT
  Age: 44 Year
  Sex: Male

DRUGS (2)
  1. OTEZLA [Suspect]
     Active Substance: APREMILAST
     Indication: HIDRADENITIS
     Dosage: STARTER PACK
     Route: 048
     Dates: start: 201902
  2. OTEZLA [Suspect]
     Active Substance: APREMILAST
     Indication: OFF LABEL USE

REACTIONS (2)
  - Abdominal discomfort [Unknown]
  - Nausea [Unknown]

NARRATIVE: CASE EVENT DATE: 20190221
